FAERS Safety Report 17950961 (Version 3)
Quarter: 2020Q3

REPORT INFORMATION
  Report Type: Report from Study
  Country: CA (occurrence: CA)
  Receive Date: 20200626
  Receipt Date: 20200724
  Transmission Date: 20201103
  Serious: Yes (Hospitalization)
  Sender: FDA-Public Use
  Company Number: CA-GLAXOSMITHKLINE-CA2020AMR108423

PATIENT
  Sex: Female

DRUGS (1)
  1. MEPOLIZUMAB [Suspect]
     Active Substance: MEPOLIZUMAB
     Indication: ASTHMA
     Dosage: 100 MG, Z, MONTHLY
     Route: 042
     Dates: start: 20190609

REACTIONS (12)
  - Pain in extremity [Unknown]
  - Peripheral swelling [Unknown]
  - Pain [Unknown]
  - Crystal arthropathy [Unknown]
  - Arthritis [Unknown]
  - Chondrocalcinosis pyrophosphate [Unknown]
  - Asthma [Unknown]
  - Dyspnoea [Unknown]
  - Movement disorder [Unknown]
  - Neck pain [Unknown]
  - Anti-cyclic citrullinated peptide antibody [Unknown]
  - Musculoskeletal stiffness [Unknown]
